FAERS Safety Report 15152165 (Version 2)
Quarter: 2019Q1

REPORT INFORMATION
  Report Type: Spontaneous
  Country: IT (occurrence: IT)
  Receive Date: 20180717
  Receipt Date: 20190329
  Transmission Date: 20190417
  Serious: Yes (Other)
  Sender: FDA-Public Use
  Company Number: IT-SUN PHARMACEUTICAL INDUSTRIES LTD-2018RR-178506

PATIENT
  Age: 72 Year
  Sex: Female

DRUGS (2)
  1. CAPECITABINE. [Suspect]
     Active Substance: CAPECITABINE
     Indication: NEUROENDOCRINE TUMOUR
     Dosage: CYCLICAL
     Route: 048
     Dates: start: 20180401, end: 20180428
  2. TEMOZOLOMIDE. [Suspect]
     Active Substance: TEMOZOLOMIDE
     Indication: NEUROENDOCRINE TUMOUR
     Dosage: 150 MG, CYCLICAL
     Route: 048
     Dates: start: 20180401, end: 20180428

REACTIONS (1)
  - Bone marrow toxicity [Recovered/Resolved with Sequelae]

NARRATIVE: CASE EVENT DATE: 20180511
